FAERS Safety Report 16519280 (Version 1)
Quarter: 2019Q3

REPORT INFORMATION
  Report Type: Spontaneous
  Country: US (occurrence: US)
  Receive Date: 20190702
  Receipt Date: 20190702
  Transmission Date: 20191004
  Serious: Yes (Hospitalization, Disabling, Other)
  Sender: FDA-Public Use
  Company Number: US-BRISTOL-MYERS SQUIBB COMPANY-BMS-2019-061353

PATIENT
  Sex: Male

DRUGS (1)
  1. SUSTIVA [Suspect]
     Active Substance: EFAVIRENZ
     Indication: HIV INFECTION
     Dosage: 400 MILLIGRAM, BID
     Route: 048
     Dates: start: 1999, end: 2010

REACTIONS (2)
  - Depression [Unknown]
  - Suicidal ideation [Unknown]
